FAERS Safety Report 9167843 (Version 2)
Quarter: 2013Q1

REPORT INFORMATION
  Report Type: Report from Study
  Country: AU (occurrence: AU)
  Receive Date: 20130318
  Receipt Date: 20130320
  Transmission Date: 20140127
  Serious: Yes (Hospitalization)
  Sender: FDA-Public Use
  Company Number: PHHY2013AU024414

PATIENT
  Age: 26 Year
  Sex: Male

DRUGS (2)
  1. CLOZARIL [Suspect]
     Dosage: 250 MG
     Dates: start: 20130219
  2. CLOZARIL [Suspect]
     Dosage: 300 MG, UNK
     Dates: end: 201303

REACTIONS (5)
  - Myocarditis [Unknown]
  - Troponin increased [Unknown]
  - Troponin T increased [Unknown]
  - White blood cell count increased [Unknown]
  - Neutrophil count increased [Unknown]
